FAERS Safety Report 6602590-7 (Version None)
Quarter: 2010Q1

REPORT INFORMATION
  Report Type: 
  Country: None (occurrence: None)
  Receive Date: 20100225
  Receipt Date: 20100216
  Transmission Date: 20100710
  Serious: Yes (Other)
  Sender: FDA-Public Use
  Company Number: US-MERCK-0805USA00449

PATIENT
  Age: 55 Year
  Sex: Female

DRUGS (1)
  1. FOSAMAX [Suspect]
     Indication: OSTEOPOROSIS
     Route: 048
     Dates: start: 19980101, end: 20051201

REACTIONS (13)
  - ABSCESS [None]
  - ACTINOMYCOSIS [None]
  - DYSPLASIA [None]
  - ERYTHEMA [None]
  - FISTULA DISCHARGE [None]
  - IMPAIRED HEALING [None]
  - INTERVERTEBRAL DISC PROTRUSION [None]
  - LIPOSARCOMA [None]
  - ORAL DISORDER [None]
  - OSTEOMYELITIS [None]
  - OSTEONECROSIS [None]
  - TOOTH ABSCESS [None]
  - TOOTH DISORDER [None]
